FAERS Safety Report 4654754-X (Version None)
Quarter: 2005Q2

REPORT INFORMATION
  Report Type: 
  Country: None (occurrence: None)
  Receive Date: 20050505
  Receipt Date: 20050505
  Transmission Date: 20051028
  Serious: Yes (Other)
  Sender: FDA-Public Use
  Company Number: None

PATIENT
  Sex: Female
  Weight: 45.3597 kg

DRUGS (2)
  1. REMODULIN [Suspect]
     Indication: PULMONARY HYPERTENSION
     Dosage: 4NG/KG/MIN
     Dates: start: 20050112, end: 20050115
  2. TYLENOL (CAPLET) [Concomitant]

REACTIONS (4)
  - ABDOMINAL PAIN [None]
  - ELECTROMECHANICAL DISSOCIATION [None]
  - INJECTION SITE ERYTHEMA [None]
  - INJECTION SITE PAIN [None]
